FAERS Safety Report 11142587 (Version 3)
Quarter: 2015Q2

REPORT INFORMATION
  Report Type: Other
  Country: DE (occurrence: DE)
  Receive Date: 20150527
  Receipt Date: 20150619
  Transmission Date: 20150821
  Serious: Yes (Hospitalization)
  Sender: FDA-Public Use
  Company Number: DE-SPECTRUM PHARMACEUTICALS, INC.-14-M-DE-00442

PATIENT
  Sex: Female

DRUGS (6)
  1. RITUXIMAB [Concomitant]
     Active Substance: RITUXIMAB
     Indication: NON-HODGKIN^S LYMPHOMA
     Dosage: 607.5 MG, 1X14D
     Route: 042
     Dates: start: 20141107
  2. CYCLOPHOSPHAMIDE. [Suspect]
     Active Substance: CYCLOPHOSPHAMIDE
     Indication: NON-HODGKIN^S LYMPHOMA
     Dosage: 1215 MG, 1X14D
     Route: 042
     Dates: start: 20141112
  3. VINCRISTINE SULFATE LIPOSOME [Suspect]
     Active Substance: VINCRISTINE SULFATE
     Indication: NON-HODGKIN^S LYMPHOMA
     Dosage: 3.24 MG, UNK
     Route: 042
     Dates: start: 20141112
  4. DOXORUBICIN [Suspect]
     Active Substance: DOXORUBICIN
     Indication: NON-HODGKIN^S LYMPHOMA
     Dosage: 81 MG, 1X14D
     Route: 042
     Dates: start: 20141112
  5. PEGFILGRASTIM [Concomitant]
     Active Substance: PEGFILGRASTIM
     Indication: NON-HODGKIN^S LYMPHOMA
     Dosage: 6 MG, 1X14D
     Route: 058
     Dates: start: 20141114
  6. PREDNISOLONE. [Concomitant]
     Active Substance: PREDNISOLONE
     Indication: NON-HODGKIN^S LYMPHOMA
     Dosage: 100 MG, 5X 14 D
     Route: 048
     Dates: start: 20141112

REACTIONS (9)
  - Atrial fibrillation [None]
  - Atrioventricular block second degree [None]
  - Ascites [Recovered/Resolved]
  - Hyponatraemia [Recovered/Resolved]
  - Asthenia [None]
  - Atrial fibrillation [Recovered/Resolved]
  - Enteritis [Recovered/Resolved]
  - Dehydration [Recovered/Resolved]
  - Decreased appetite [None]

NARRATIVE: CASE EVENT DATE: 20141125
